FAERS Safety Report 5034818-1 (Version None)
Quarter: 2006Q2

REPORT INFORMATION
  Report Type: 
  Country: None (occurrence: None)
  Receive Date: 20060516
  Receipt Date: 20060130
  Transmission Date: 20061013
  Serious: Yes (Other)
  Sender: FDA-Public Use
  Company Number: AE-206-031

PATIENT
  Sex: Female

DRUGS (2)
  1. LIDODERM [Suspect]
     Indication: PAIN
     Dosage: 1 PATCH
  2. THYROID TAB [Concomitant]

REACTIONS (4)
  - HEADACHE [None]
  - LETHARGY [None]
  - LOSS OF CONSCIOUSNESS [None]
  - TREMOR [None]
